FAERS Safety Report 8234056-5 (Version None)
Quarter: 2012Q1

REPORT INFORMATION
  Report Type: 
  Country: None (occurrence: None)
  Receive Date: 20120326
  Receipt Date: 20120326
  Transmission Date: 20120608
  Serious: Yes (Disabling)
  Sender: FDA-Public Use
  Company Number: None

PATIENT
  Sex: Female
  Weight: 72.121 kg

DRUGS (2)
  1. SPIRIVA [Suspect]
     Indication: CHRONIC OBSTRUCTIVE PULMONARY DISEASE
     Route: 048
     Dates: start: 20090817, end: 20120323
  2. SPIRIVA [Suspect]

REACTIONS (3)
  - CAPSULE PHYSICAL ISSUE [None]
  - ASPIRATION [None]
  - FOREIGN BODY [None]
